FAERS Safety Report 8076658-5 (Version None)
Quarter: 2012Q1

REPORT INFORMATION
  Report Type: 
  Country: None (occurrence: None)
  Receive Date: 20120127
  Receipt Date: 20120116
  Transmission Date: 20120608
  Serious: Yes (Other)
  Sender: FDA-Public Use
  Company Number: DE-JNJFOC-20120110269

PATIENT
  Age: 51 Year
  Sex: Female
  Weight: 108 kg

DRUGS (2)
  1. SYNTESTAN [Concomitant]
     Indication: PRODUCT USED FOR UNKNOWN INDICATION
  2. TAPENTADOL HYDROCHLORIDE [Suspect]
     Indication: PAIN
     Route: 065

REACTIONS (1)
  - ALOPECIA [None]
